FAERS Safety Report 8856503 (Version 1)
Quarter: 2012Q4

REPORT INFORMATION
  Report Type: Spontaneous
  Country: US (occurrence: None)
  Receive Date: 20121024
  Receipt Date: 20121024
  Transmission Date: 20130627
  Serious: Yes (Hospitalization)
  Sender: FDA-Public Use
  Company Number: None

PATIENT
  Age: 65 Year
  Sex: Male
  Weight: 80.29 kg

DRUGS (1)
  1. BETAMETHASONE [Suspect]
     Route: 037

REACTIONS (1)
  - Chest discomfort [None]
